FAERS Safety Report 15661490 (Version 3)
Quarter: 2021Q3

REPORT INFORMATION
  Report Type: Spontaneous
  Country: US (occurrence: US)
  Receive Date: 20181127
  Receipt Date: 20210722
  Transmission Date: 20211014
  Serious: Yes (Other)
  Sender: FDA-Public Use
  Company Number: US-GILEAD-2018-0376068

PATIENT
  Age: 49 Year
  Sex: Male
  Weight: 59.86 kg

DRUGS (22)
  1. CHOLECALCIFEROL [Concomitant]
     Active Substance: CHOLECALCIFEROL
  2. GENVOYA [Concomitant]
     Active Substance: COBICISTAT\ELVITEGRAVIR\EMTRICITABINE\TENOFOVIR ALAFENAMIDE FUMARATE
  3. ATRIPLA [Suspect]
     Active Substance: EFAVIRENZ\EMTRICITABINE\TENOFOVIR DISOPROXIL FUMARATE
     Dosage: UNK
     Route: 065
     Dates: start: 2010, end: 201205
  4. VITAMIN D3 [Concomitant]
     Active Substance: CHOLECALCIFEROL
  5. CRIXIVAN [Concomitant]
     Active Substance: INDINAVIR SULFATE
  6. KETOCONAZOLE. [Concomitant]
     Active Substance: KETOCONAZOLE
  7. ZERIT [Concomitant]
     Active Substance: STAVUDINE
  8. AMOXI CLAV [Concomitant]
     Active Substance: AMOXICILLIN\CLAVULANATE POTASSIUM
  9. ATRIPLA [Suspect]
     Active Substance: EFAVIRENZ\EMTRICITABINE\TENOFOVIR DISOPROXIL FUMARATE
     Indication: HIV INFECTION
     Dosage: UNK
     Route: 048
     Dates: start: 2010, end: 2013
  10. STRIBILD [Suspect]
     Active Substance: COBICISTAT\ELVITEGRAVIR\EMTRICITABINE\TENOFOVIR DISOPROXIL FUMARATE
     Indication: HIV INFECTION
     Dosage: UNK
     Route: 048
     Dates: start: 20130221, end: 20160531
  11. EPIVIR [Concomitant]
     Active Substance: LAMIVUDINE
  12. MYRBETRIC [Concomitant]
     Active Substance: MIRABEGRON
  13. OMEPRAZOLE. [Concomitant]
     Active Substance: OMEPRAZOLE
  14. TIZANIDINE. [Concomitant]
     Active Substance: TIZANIDINE
  15. DOXYCYCLINE HYCLATE. [Concomitant]
     Active Substance: DOXYCYCLINE HYCLATE
  16. BACLOFEN. [Concomitant]
     Active Substance: BACLOFEN
  17. SERTRALINE [Concomitant]
     Active Substance: SERTRALINE HYDROCHLORIDE
  18. NICODERM CQ [Concomitant]
     Active Substance: NICOTINE
  19. ATRIPLA [Suspect]
     Active Substance: EFAVIRENZ\EMTRICITABINE\TENOFOVIR DISOPROXIL FUMARATE
     Dosage: UNK
     Route: 065
     Dates: start: 201302
  20. NORVIR [Concomitant]
     Active Substance: RITONAVIR
  21. LYRICA [Concomitant]
     Active Substance: PREGABALIN
  22. CHANTIX [Concomitant]
     Active Substance: VARENICLINE TARTRATE

REACTIONS (13)
  - Abnormal dreams [Unknown]
  - Facial bones fracture [Unknown]
  - Anxiety [Not Recovered/Not Resolved]
  - Bone density decreased [Unknown]
  - Osteopenia [Not Recovered/Not Resolved]
  - Osteoporosis [Not Recovered/Not Resolved]
  - Anhedonia [Not Recovered/Not Resolved]
  - Mobility decreased [Unknown]
  - Proteinuria [Recovered/Resolved]
  - Emotional distress [Not Recovered/Not Resolved]
  - Economic problem [Unknown]
  - Renal impairment [Not Recovered/Not Resolved]
  - Pain [Not Recovered/Not Resolved]

NARRATIVE: CASE EVENT DATE: 20130808
